FAERS Safety Report 25472119 (Version 1)
Quarter: 2025Q2

REPORT INFORMATION
  Report Type: Spontaneous
  Country: CH (occurrence: CH)
  Receive Date: 20250624
  Receipt Date: 20250624
  Transmission Date: 20250716
  Serious: Yes (Hospitalization)
  Sender: ALEXION PHARMACEUTICALS
  Company Number: CH-ASTRAZENECA-202506GLO018236CH

PATIENT
  Age: 8 Year
  Weight: 38 kg

DRUGS (12)
  1. OMEPRAZOLE [Suspect]
     Active Substance: OMEPRAZOLE
     Dosage: 20 MILLIGRAM, QD
  2. ZOVIRAX [Suspect]
     Active Substance: ACYCLOVIR
     Dosage: 580 MILLIGRAM, BID
  3. COTRIMOXAZOLE [Suspect]
     Active Substance: SULFAMETHOXAZOLE\TRIMETHOPRIM
     Dosage: 400/80 MILLIGRAM, QD
     Route: 065
  4. NOVALGIN (METAMIZOLE SODIUM) [Suspect]
     Active Substance: METAMIZOLE SODIUM
  5. CYCLOSPORINE [Suspect]
     Active Substance: CYCLOSPORINE
  6. KINERET [Concomitant]
     Active Substance: ANAKINRA
     Route: 065
  7. RUXOLITINIB [Concomitant]
     Active Substance: RUXOLITINIB
  8. LEUCOVORIN SODIUM [Concomitant]
     Active Substance: LEUCOVORIN SODIUM
     Route: 065
  9. PREDNISOLONE [Concomitant]
     Active Substance: PREDNISOLONE
  10. VITAMIN D3 [Concomitant]
     Active Substance: CHOLECALCIFEROL
  11. AMPHO-MORONAL [Concomitant]
     Active Substance: AMPHOTERICIN B
  12. OMEPRAZOLE [Concomitant]
     Active Substance: OMEPRAZOLE

REACTIONS (1)
  - Acute kidney injury [Recovered/Resolved]
